FAERS Safety Report 21687631 (Version 6)
Quarter: 2023Q1

REPORT INFORMATION
  Report Type: Report from Study
  Country: RU (occurrence: None)
  Receive Date: 20221206
  Receipt Date: 20230323
  Transmission Date: 20230418
  Serious: Yes (Hospitalization)
  Sender: FDA-Public Use
  Company Number: RU-ROCHE-3229173

PATIENT
  Age: 73 Year
  Sex: Female
  Weight: 62.7 kg

DRUGS (9)
  1. TIRAGOLUMAB [Suspect]
     Active Substance: TIRAGOLUMAB
     Indication: Triple negative breast cancer
     Dosage: START DATE OF MOST RECENT DOSE OF STUDY DRUG OF 840 MG PRIOR TO AE/SAE:  20/OCT/2022
     Route: 042
     Dates: start: 20210224
  2. ATEZOLIZUMAB [Suspect]
     Active Substance: ATEZOLIZUMAB
     Indication: Triple negative breast cancer
     Dosage: START DATE OF MOST RECENT DOSE OF STUDY DRUG OF 1680 MG  PRIOR TO AE/SAE: 20/OCT/2022
     Route: 041
     Dates: start: 20210224
  3. PACLITAXEL [Suspect]
     Active Substance: PACLITAXEL
     Indication: Triple negative breast cancer
     Dosage: START DATE OF MOST RECENT DOSE OF STUDY DRUG OF 160 MG PRIOR TO AE/SAE: 09/SEP/2021
     Route: 042
     Dates: start: 20210224
  4. ENALAPRIL [Concomitant]
     Active Substance: ENALAPRIL
     Indication: Hypertension
     Route: 048
     Dates: start: 2013
  5. EMOLIUM [Concomitant]
     Indication: Rash papular
     Route: 061
     Dates: start: 20210401
  6. LEVOTHYROXINE SODIUM [Concomitant]
     Active Substance: LEVOTHYROXINE SODIUM
     Indication: Hypothyroidism
     Route: 048
     Dates: start: 20211209
  7. LEVOTHYROXINE SODIUM [Concomitant]
     Active Substance: LEVOTHYROXINE SODIUM
     Route: 048
     Dates: start: 20221021, end: 20221103
  8. LEVOTHYROXINE SODIUM [Concomitant]
     Active Substance: LEVOTHYROXINE SODIUM
     Route: 048
     Dates: start: 20221104
  9. MAXILAC [Concomitant]
     Route: 048
     Dates: start: 20221010, end: 20221018

REACTIONS (1)
  - Transient global amnesia [Recovered/Resolved]

NARRATIVE: CASE EVENT DATE: 20221114
